FAERS Safety Report 9479003 (Version 5)
Quarter: 2014Q4

REPORT INFORMATION
  Report Type: Spontaneous
  Country: ES (occurrence: None)
  Receive Date: 20130822
  Receipt Date: 20141223
  Transmission Date: 20150529
  Serious: Yes (Hospitalization)
  Sender: FDA-Public Use
  Company Number: 2013MPI00485

PATIENT
  Age: 40 Year
  Sex: Male
  Weight: 90 kg

DRUGS (7)
  1. ALLOPURINOL. [Concomitant]
     Active Substance: ALLOPURINOL
  2. BRENTUXIMAB VEDOTIN [Suspect]
     Active Substance: BRENTUXIMAB VEDOTIN
     Indication: LYMPHOMA
     Dosage: 108 MG, UNK, INTRAVENOUS
     Route: 042
     Dates: start: 20130725, end: 20130725
  3. RANITIDINE [Concomitant]
     Active Substance: RANITIDINE\RANITIDINE HYDROCHLORIDE
  4. POLARAMINE (CHLORPHENAMINE MALEATE) [Concomitant]
  5. VINBLASTINE [Suspect]
     Active Substance: VINBLASTINE
     Indication: LYMPHOMA
     Dosage: 13 MG, UNK, INTRAVENOUS
     Route: 042
     Dates: start: 20130725, end: 20130725
  6. DOXORUBICIN [Suspect]
     Active Substance: DOXORUBICIN
     Indication: LYMPHOMA
     Route: 042
     Dates: start: 20130725, end: 20130725
  7. DACARBAZINE. [Suspect]
     Active Substance: DACARBAZINE
     Indication: LYMPHOMA
     Dosage: 796 MG, UNK, INTRAVNENOUS
     Route: 042
     Dates: start: 20130725, end: 20130725

REACTIONS (4)
  - Hallucination [None]
  - Encephalitis [None]
  - Aphasia [None]
  - Pyrexia [None]

NARRATIVE: CASE EVENT DATE: 20130806
